FAERS Safety Report 5020978-5 (Version None)
Quarter: 2006Q2

REPORT INFORMATION
  Report Type: 
  Country: None (occurrence: None)
  Receive Date: 20060608
  Receipt Date: 20060524
  Transmission Date: 20061013
  Serious: Yes (Death, Life-Threatening, Hospitalization)
  Sender: FDA-Public Use
  Company Number: PHRM2006FR01657

PATIENT
  Sex: Female

DRUGS (1)
  1. TRILEPTAL [Suspect]
     Indication: STATUS EPILEPTICUS
     Dosage: 600 MG, BID
     Route: 048

REACTIONS (4)
  - COMA [None]
  - ENCEPHALOPATHY [None]
  - INFECTION [None]
  - LACK OF SPONTANEOUS SPEECH [None]
